FAERS Safety Report 22880396 (Version 6)
Quarter: 2024Q4

REPORT INFORMATION
  Report Type: Report from Study
  Country: CO (occurrence: CO)
  Receive Date: 20230829
  Receipt Date: 20241216
  Transmission Date: 20250115
  Serious: Yes (Hospitalization, Other)
  Sender: IPSEN BIOPHARMACEUTICALS, INC.
  Company Number: CO-IPSEN Group, Research and Development-2023-14225

PATIENT
  Age: 67 Year
  Sex: Female
  Weight: 78 kg

DRUGS (12)
  1. LANREOTIDE ACETATE [Suspect]
     Active Substance: LANREOTIDE ACETATE
     Indication: Acromegaly
     Dosage: 1 UNIT EVERY 42 DAY VIA DEEP SUBCUTANEOUS ROUTE
     Route: 058
     Dates: start: 20180101
  2. LANREOTIDE ACETATE [Suspect]
     Active Substance: LANREOTIDE ACETATE
     Dosage: EACH 30 DAYS VIA DEEP SUBCUTANEOUS ROUTE
     Route: 058
  3. LANREOTIDE ACETATE [Suspect]
     Active Substance: LANREOTIDE ACETATE
     Dosage: VIA DEEP SUBCUTANEOUS ROUTE
     Route: 058
     Dates: start: 20230309
  4. HYDROCHLOROTHIAZIDE [Concomitant]
     Active Substance: HYDROCHLOROTHIAZIDE
     Indication: Hypertension
     Dosage: 1 TABLET EVERY 12 HOURS
     Route: 048
     Dates: start: 20170101
  5. HYDROCHLOROTHIAZIDE [Concomitant]
     Active Substance: HYDROCHLOROTHIAZIDE
     Dosage: ONGOING
     Route: 048
     Dates: start: 2021
  6. ATORVASTATIN [Concomitant]
     Active Substance: ATORVASTATIN
     Indication: Blood triglycerides
     Dosage: 1 TABLET EVERY 24 HOURS
     Route: 048
     Dates: start: 2014
  7. ATORVASTATIN [Concomitant]
     Active Substance: ATORVASTATIN
     Indication: Dyslipidaemia
  8. ATORVASTATIN [Concomitant]
     Active Substance: ATORVASTATIN
     Indication: Blood cholesterol
  9. TRAZODONE [Concomitant]
     Active Substance: TRAZODONE HYDROCHLORIDE
     Indication: Sleep disorder
     Dosage: 1 TABLET EVERY 24 HOURS AT NIGHT
     Route: 048
     Dates: start: 2014
  10. TRAZODONE [Concomitant]
     Active Substance: TRAZODONE HYDROCHLORIDE
     Dosage: 1 TABLET EVERY 24 HOURS, ONGOING
     Route: 048
     Dates: start: 20230101
  11. PINAVERIUM BROMIDE [Concomitant]
     Active Substance: PINAVERIUM BROMIDE
     Indication: Dyspepsia
     Dosage: ONGOING
     Route: 048
     Dates: start: 202210
  12. ENALAPRIL [Concomitant]
     Active Substance: ENALAPRIL
     Indication: Hypertension
     Dosage: ONGOING
     Route: 048
     Dates: start: 2009

REACTIONS (20)
  - Gastric ulcer [Not Recovered/Not Resolved]
  - Ear pain [Not Recovered/Not Resolved]
  - Gastritis [Unknown]
  - Abdominal pain upper [Not Recovered/Not Resolved]
  - Headache [Not Recovered/Not Resolved]
  - Insomnia [Unknown]
  - Sleep apnoea syndrome [Not Recovered/Not Resolved]
  - Osteoarthritis [Not Recovered/Not Resolved]
  - Stress [Not Recovered/Not Resolved]
  - Pain of skin [Not Recovered/Not Resolved]
  - Anaemia [Not Recovered/Not Resolved]
  - Hypertension [Not Recovered/Not Resolved]
  - Gait inability [Not Recovered/Not Resolved]
  - Eye irritation [Not Recovered/Not Resolved]
  - Nausea [Not Recovered/Not Resolved]
  - Headache [Not Recovered/Not Resolved]
  - Lack of injection site rotation [Unknown]
  - Off label use [Unknown]
  - Product dose omission issue [Unknown]
  - Product supply issue [Unknown]

NARRATIVE: CASE EVENT DATE: 20220101
